FAERS Safety Report 13817356 (Version 1)
Quarter: 2017Q3

REPORT INFORMATION
  Report Type: Spontaneous
  Country: GB (occurrence: GB)
  Receive Date: 20170731
  Receipt Date: 20170731
  Transmission Date: 20171127
  Serious: Yes (Other)
  Sender: FDA-Public Use
  Company Number: PHFR2017GB006118

PATIENT
  Age: 65 Year
  Sex: Male
  Weight: 80.5 kg

DRUGS (2)
  1. CIPROFLOXACIN ACCORD [Suspect]
     Active Substance: CIPROFLOXACIN
     Indication: SINUSITIS
     Dosage: 500 MG, TID
     Route: 065
     Dates: start: 20170108
  2. CO-AMOXICLAV [Suspect]
     Active Substance: AMOXICILLIN\CLAVULANIC ACID
     Indication: SINUSITIS
     Dosage: TID
     Route: 065
     Dates: start: 201703

REACTIONS (11)
  - Bowel movement irregularity [Unknown]
  - Headache [Unknown]
  - Abdominal discomfort [Unknown]
  - Distractibility [Unknown]
  - Gait disturbance [Unknown]
  - Constipation [Unknown]
  - Dyspepsia [Unknown]
  - Decreased appetite [Unknown]
  - Change of bowel habit [Unknown]
  - Mood altered [Unknown]
  - Tendonitis [Unknown]
